FAERS Safety Report 7954162 (Version 2)
Quarter: 2013Q1

REPORT INFORMATION
  Report Type: Spontaneous
  Country: DE (occurrence: DE)
  Receive Date: 20110520
  Receipt Date: 20130226
  Transmission Date: 20140127
  Serious: Yes (Hospitalization, Other)
  Sender: FDA-Public Use
  Company Number: PHHY2011DE20682

PATIENT
  Age: 55 Year
  Sex: Female

DRUGS (4)
  1. SANDOSTATIN LAR [Suspect]
     Indication: PANCREATIC NEUROENDOCRINE TUMOUR
     Dosage: 30 MG, PER 28 DAYS
     Route: 030
     Dates: start: 2007, end: 20130117
  2. OBSIDAN [Concomitant]
     Indication: PANCREATIC NEUROENDOCRINE TUMOUR
     Dosage: 1 DF, QD
     Dates: start: 2007
  3. PANTOPRAZOLE [Concomitant]
     Indication: PANCREATIC NEUROENDOCRINE TUMOUR
     Dosage: 1 DF, QD
  4. PROGLICEM [Concomitant]
     Indication: PANCREATIC NEUROENDOCRINE TUMOUR
     Dates: start: 2007

REACTIONS (4)
  - Flushing [Not Recovered/Not Resolved]
  - Malignant neoplasm progression [Unknown]
  - Weight decreased [Recovering/Resolving]
  - Diarrhoea [Recovering/Resolving]
